FAERS Safety Report 19098060 (Version 4)
Quarter: 2021Q3

REPORT INFORMATION
  Report Type: Report from Study
  Country: BR (occurrence: BR)
  Receive Date: 20210406
  Receipt Date: 20210810
  Transmission Date: 20211014
  Serious: Yes (Other)
  Sender: FDA-Public Use
  Company Number: BR-TAKEDA-2020TUS059502

PATIENT
  Age: 6 Year
  Sex: Male
  Weight: 27 kg

DRUGS (11)
  1. IDURSULFASE [Suspect]
     Active Substance: IDURSULFASE
     Dosage: UNK
     Route: 065
  2. REPLAGAL [Suspect]
     Active Substance: AGALSIDASE ALFA
     Indication: FABRY^S DISEASE
     Dosage: 2 VIALS, Q2WEEKS
     Route: 042
     Dates: start: 20191001
  3. CELESTONE [Concomitant]
     Active Substance: BETAMETHASONE
     Dosage: UNK
     Route: 065
     Dates: end: 20210708
  4. IDURSULFASE [Suspect]
     Active Substance: IDURSULFASE
     Dosage: 2 DOSAGE FORM, Q2WEEKS
     Route: 042
  5. ARIPIPRAZOLE. [Concomitant]
     Active Substance: ARIPIPRAZOLE
     Dosage: UNK UNK, BID
     Route: 065
  6. TEGRETOL [Concomitant]
     Active Substance: CARBAMAZEPINE
     Indication: AGITATION
  7. IDURSULFASE [Suspect]
     Active Substance: IDURSULFASE
     Dosage: 2 DOSAGE FORM
     Route: 042
  8. IDURSULFASE [Suspect]
     Active Substance: IDURSULFASE
     Indication: MUCOPOLYSACCHARIDOSIS II
     Dosage: 2 DOSAGE FORM, Q2WEEKS
     Route: 042
     Dates: start: 20191001
  9. TEGRETOL [Concomitant]
     Active Substance: CARBAMAZEPINE
     Indication: AUTISM SPECTRUM DISORDER
     Dosage: 5 MILLIGRAM, BID
     Route: 065
  10. HALDOL [Concomitant]
     Active Substance: HALOPERIDOL
     Indication: AGITATION
     Dosage: UNK UNK, BID
     Route: 065
  11. AMOXICILLIN. [Concomitant]
     Active Substance: AMOXICILLIN
     Dosage: UNK
     Route: 065
     Dates: end: 20210708

REACTIONS (10)
  - Underdose [Unknown]
  - Therapy interrupted [Unknown]
  - Product dose omission issue [Unknown]
  - Rhinitis [Unknown]
  - Suspected COVID-19 [Unknown]
  - Productive cough [Unknown]
  - Pyrexia [Recovering/Resolving]
  - Influenza [Unknown]
  - Cough [Recovering/Resolving]
  - Secretion discharge [Unknown]

NARRATIVE: CASE EVENT DATE: 20201130
